FAERS Safety Report 11764835 (Version 1)
Quarter: 2015Q4

REPORT INFORMATION
  Report Type: Spontaneous
  Country: US (occurrence: US)
  Receive Date: 20151120
  Receipt Date: 20151120
  Transmission Date: 20160304
  Serious: No
  Sender: FDA-Public Use
  Company Number: US-ELI_LILLY_AND_COMPANY-US201308002554

PATIENT
  Sex: Female

DRUGS (2)
  1. FORTEO [Suspect]
     Active Substance: TERIPARATIDE
     Dosage: UNK, QD
     Dates: start: 201302
  2. FORTEO [Suspect]
     Active Substance: TERIPARATIDE
     Dosage: UNK, QD
     Dates: end: 20130803

REACTIONS (9)
  - Disturbance in attention [Unknown]
  - Vomiting [Recovered/Resolved]
  - Viral infection [Unknown]
  - Influenza [Unknown]
  - Blood pressure increased [Unknown]
  - Balance disorder [Unknown]
  - Nausea [Unknown]
  - Vertigo [Unknown]
  - Dizziness [Unknown]
